FAERS Safety Report 12375247 (Version 1)
Quarter: 2016Q2

REPORT INFORMATION
  Report Type: Spontaneous
  Country: US (occurrence: None)
  Receive Date: 20160516
  Receipt Date: 20160516
  Transmission Date: 20160815
  Serious: Yes (Hospitalization)
  Sender: FDA-Public Use
  Company Number: None

PATIENT
  Age: 67 Year
  Sex: Male
  Weight: 77 kg

DRUGS (1)
  1. RIBAVIRIN. [Suspect]
     Active Substance: RIBAVIRIN
     Dosage: MG PO
     Route: 048
     Dates: start: 20141129, end: 20150208

REACTIONS (3)
  - Periorbital oedema [None]
  - Dyspnoea [None]
  - Rash [None]

NARRATIVE: CASE EVENT DATE: 20150213
